FAERS Safety Report 7353169-3 (Version None)
Quarter: 2011Q1

REPORT INFORMATION
  Report Type: 
  Country: None (occurrence: None)
  Receive Date: 20110310
  Receipt Date: 20110310
  Transmission Date: 20110831
  Serious: Yes (Other)
  Sender: FDA-Public Use
  Company Number: None

PATIENT
  Age: 4 Year
  Sex: Male
  Weight: 16.9 kg

DRUGS (3)
  1. GAMMAGARD LIQUID [Suspect]
     Indication: HYPOGAMMAGLOBULINAEMIA
     Dosage: 10G EVERY 3-4 WEEKS IV DRIP
     Route: 041
     Dates: start: 20070801
  2. ACETAMINOPHEN [Concomitant]
  3. DIPHENHYDRAMINE [Concomitant]

REACTIONS (4)
  - INFUSION RELATED REACTION [None]
  - VOMITING [None]
  - HEADACHE [None]
  - PYREXIA [None]
